FAERS Safety Report 16936488 (Version 2)
Quarter: 2019Q4

REPORT INFORMATION
  Report Type: Report from Study
  Country: US (occurrence: US)
  Receive Date: 20191018
  Receipt Date: 20191119
  Transmission Date: 20200122
  Serious: Yes (Death, Hospitalization, Other)
  Sender: FDA-Public Use
  Company Number: US-BRISTOL-MYERS SQUIBB COMPANY-BMS-2019-081442

PATIENT
  Sex: Male

DRUGS (2)
  1. HYDROXYUREA. [Suspect]
     Active Substance: HYDROXYUREA
     Indication: PRODUCT USED FOR UNKNOWN INDICATION
     Dosage: UNK
     Route: 065
  2. XOSPATA [Suspect]
     Active Substance: GILTERITINIB
     Indication: MYELOPROLIFERATIVE NEOPLASM
     Dosage: 120 MILLIGRAM, QD
     Route: 048
     Dates: start: 20190627

REACTIONS (6)
  - Staphylococcal infection [Unknown]
  - Pneumonia [None]
  - Skin ulcer [Unknown]
  - Death [Fatal]
  - White blood cell count decreased [Unknown]
  - White blood cell count increased [Unknown]
